FAERS Safety Report 9753882 (Version 2)
Quarter: 2013Q4

REPORT INFORMATION
  Report Type: Spontaneous
  Country: US (occurrence: US)
  Receive Date: 20131213
  Receipt Date: 20131213
  Transmission Date: 20140711
  Serious: No
  Sender: FDA-Public Use
  Company Number: US-GILEAD-2010-0027080

PATIENT
  Sex: Female
  Weight: 70.76 kg

DRUGS (20)
  1. LETAIRIS [Suspect]
     Indication: PULMONARY ARTERIAL HYPERTENSION
     Route: 048
     Dates: start: 20100128
  2. DEMADEX [Concomitant]
  3. LOPRESSOR [Concomitant]
  4. NORVASC [Concomitant]
  5. AVAPRO [Concomitant]
  6. EVISTA [Concomitant]
  7. DICYCLOMINE [Concomitant]
  8. ZYRTEC [Concomitant]
  9. GLUCOPHAGE [Concomitant]
  10. LEXAPRO [Concomitant]
  11. PRILOSEC [Concomitant]
  12. PROTONIX [Concomitant]
  13. XANAX [Concomitant]
  14. MECLIZINE [Concomitant]
  15. TYLENOL [Concomitant]
  16. FERROUS SULFATE [Concomitant]
  17. K-DUR [Concomitant]
  18. VITAMIN E [Concomitant]
  19. CALCIUM [Concomitant]
  20. VITAMIN C [Concomitant]

REACTIONS (2)
  - Weight increased [Unknown]
  - Oedema peripheral [Unknown]
